FAERS Safety Report 9217551 (Version 1)
Quarter: 2013Q2

REPORT INFORMATION
  Report Type: Spontaneous
  Country: US (occurrence: None)
  Receive Date: 20130405
  Receipt Date: 20130405
  Transmission Date: 20140414
  Serious: Yes (Hospitalization)
  Sender: FDA-Public Use
  Company Number: None

PATIENT
  Age: 30 Year
  Sex: Male
  Weight: 104.8 kg

DRUGS (1)
  1. NAPROXEN [Suspect]
     Dates: start: 20130116

REACTIONS (2)
  - Upper gastrointestinal haemorrhage [None]
  - Gastric haemorrhage [None]
